FAERS Safety Report 20364143 (Version 4)
Quarter: 2022Q1

REPORT INFORMATION
  Report Type: Spontaneous
  Country: FR (occurrence: FR)
  Receive Date: 20220121
  Receipt Date: 20220208
  Transmission Date: 20220423
  Serious: Yes (Hospitalization)
  Sender: FDA-Public Use
  Company Number: None

PATIENT
  Age: 48 Year
  Sex: Female
  Weight: 80 kg

DRUGS (9)
  1. INFLIXIMAB [Suspect]
     Active Substance: INFLIXIMAB
     Indication: Colitis
     Dosage: FREQ:15 D;
     Route: 041
     Dates: start: 20210320, end: 20210407
  2. INFLIXIMAB [Suspect]
     Active Substance: INFLIXIMAB
     Dosage: 5 MG/KG, SINGLE
     Route: 041
     Dates: start: 20210514, end: 20210514
  3. INFLIXIMAB [Suspect]
     Active Substance: INFLIXIMAB
     Dosage: FREQ:8 WK;
     Route: 041
     Dates: start: 20210611, end: 20211006
  4. INFLIXIMAB [Suspect]
     Active Substance: INFLIXIMAB
     Dosage: FREQ:4 WK;
     Route: 041
     Dates: start: 20211105, end: 20211201
  5. METHOTREXATE SODIUM [Suspect]
     Active Substance: METHOTREXATE SODIUM
     Indication: Colitis
     Dosage: 50 MG, 1X/DAY BAD COMPLAINCE WITH CESSATION SOMETIME
     Route: 048
     Dates: start: 20211106
  6. NEO-MERCAZOLE [Suspect]
     Active Substance: CARBIMAZOLE
     Indication: Basedow^s disease
     Dosage: 50 MG, 1X/DAY BAD COMPLAINCE WITH CESSATION SOMETIME
     Route: 048
     Dates: start: 20210317
  7. AZATHIOPRINE [Suspect]
     Active Substance: AZATHIOPRINE
     Indication: Colitis
     Dosage: 50 MG, 1X/DAY BAD COMPLAINCE WITH CESSATION SOMETIME
     Route: 048
     Dates: start: 20210320, end: 20211105
  8. FOLIC ACID [Concomitant]
     Active Substance: FOLIC ACID
     Dosage: UNK
     Route: 065
  9. LEVOTHYROXINE [Concomitant]
     Active Substance: LEVOTHYROXINE
     Dosage: UNK
     Route: 065

REACTIONS (3)
  - Hepatic cytolysis [Not Recovered/Not Resolved]
  - Treatment noncompliance [Unknown]
  - Off label use [Unknown]

NARRATIVE: CASE EVENT DATE: 20210320
